FAERS Safety Report 4702254-0 (Version None)
Quarter: 2005Q2

REPORT INFORMATION
  Report Type: 
  Country: None (occurrence: None)
  Receive Date: 20050629
  Receipt Date: 20050412
  Transmission Date: 20051028
  Serious: No
  Sender: FDA-Public Use
  Company Number: US-BRISTOL-MYERS SQUIBB COMPANY-12929881

PATIENT
  Age: 17 Year
  Sex: Male
  Weight: 64 kg

DRUGS (6)
  1. REYATAZ [Suspect]
     Indication: HIV INFECTION
     Dates: start: 20040720
  2. ZERIT [Concomitant]
  3. NORVIR [Concomitant]
  4. EPIVIR [Concomitant]
  5. BACTRIM [Concomitant]
  6. IMMUNE GLOBULIN INTRAVENOUS (HUMAN) [Concomitant]
     Route: 042

REACTIONS (2)
  - BLOOD BILIRUBIN INCREASED [None]
  - BLOOD BILIRUBIN UNCONJUGATED INCREASED [None]
